FAERS Safety Report 20899827 (Version 1)
Quarter: 2022Q2

REPORT INFORMATION
  Report Type: Spontaneous
  Country: US (occurrence: None)
  Receive Date: 20220531
  Receipt Date: 20220531
  Transmission Date: 20220721
  Serious: No
  Sender: FDA-Public Use
  Company Number: None

PATIENT
  Age: 75 Year
  Sex: Female
  Weight: 82.8 kg

DRUGS (7)
  1. ATORVASTATIN [Suspect]
     Active Substance: ATORVASTATIN
     Indication: Low density lipoprotein increased
     Dosage: OTHER QUANTITY : 1 TABLET(S);?
     Route: 048
     Dates: start: 20220510, end: 20220531
  2. PROVENTIL HFA [Concomitant]
     Active Substance: ALBUTEROL SULFATE
  3. PULMICORT [Concomitant]
  4. SINGULAIR [Concomitant]
     Active Substance: MONTELUKAST SODIUM
  5. NORTRIPTYLINE [Concomitant]
  6. TYLENOL [Concomitant]
  7. ALEVE [Concomitant]
     Active Substance: NAPROXEN SODIUM

REACTIONS (5)
  - Abdominal discomfort [None]
  - Hunger [None]
  - Hot flush [None]
  - Product complaint [None]
  - Liver disorder [None]

NARRATIVE: CASE EVENT DATE: 20220531
